FAERS Safety Report 9436439 (Version 1)
Quarter: 2013Q3

REPORT INFORMATION
  Report Type: Spontaneous
  Country: US (occurrence: US)
  Receive Date: 20130802
  Receipt Date: 20130802
  Transmission Date: 20140515
  Serious: Yes (Hospitalization)
  Sender: FDA-Public Use
  Company Number: US-MERCK-1307USA016719

PATIENT
  Sex: Female

DRUGS (1)
  1. SYLATRON [Suspect]
     Indication: MALIGNANT MELANOMA

REACTIONS (1)
  - Weight decreased [Unknown]
